FAERS Safety Report 10381924 (Version 1)
Quarter: 2014Q1

REPORT INFORMATION
  Report Type: Spontaneous
  Country: US (occurrence: None)
  Receive Date: 20140306
  Receipt Date: 20140306
  Transmission Date: 20141002
  Serious: Yes (Other)
  Sender: FDA-Public Use
  Company Number: 163-21880-13104207

PATIENT
  Age: 70 Year
  Sex: Female
  Weight: 56.7 kg

DRUGS (6)
  1. REVLIMID [Suspect]
     Indication: PLASMA CELL MYELOMA
     Route: 048
     Dates: start: 201204
  2. DEXAMETHASONE [Concomitant]
  3. ASPIRIN (ACETYLSALICYLIC ACID) [Concomitant]
  4. FENTANYL [Concomitant]
  5. OXYCODONE HCL (OXYCODONE HYDROCHLORIDE) [Concomitant]
  6. VITAMIN D (ERGOCALCIFEROL) [Concomitant]

REACTIONS (2)
  - Drug dose omission [None]
  - No adverse event [None]
